FAERS Safety Report 6830644-9 (Version None)
Quarter: 2010Q3

REPORT INFORMATION
  Report Type: 
  Country: None (occurrence: None)
  Receive Date: 20100709
  Receipt Date: 20100709
  Transmission Date: 20110219
  Serious: Yes (Disabling, Other)
  Sender: FDA-Public Use
  Company Number: None

PATIENT
  Age: 43 Year
  Sex: Male
  Weight: 61.2356 kg

DRUGS (1)
  1. ZELAPAR [Suspect]
     Indication: PARKINSON'S DISEASE
     Dosage: 2.5 MG 1X A DAY ORAL
     Route: 048
     Dates: start: 20100329, end: 20100331

REACTIONS (3)
  - CONDITION AGGRAVATED [None]
  - DYSKINESIA [None]
  - PARKINSON'S DISEASE [None]
